FAERS Safety Report 8496559-8 (Version None)
Quarter: 2012Q3

REPORT INFORMATION
  Report Type: 
  Country: None (occurrence: None)
  Receive Date: 20120709
  Receipt Date: 20120629
  Transmission Date: 20120928
  Serious: Yes (Hospitalization, Other)
  Sender: FDA-Public Use
  Company Number: US-ABBOTT-12P-163-0952260-00

PATIENT
  Age: 53 Year
  Sex: Female

DRUGS (20)
  1. PREDNISONE [Concomitant]
     Indication: SYSTEMIC LUPUS ERYTHEMATOSUS
  2. POTASSIUM CHLORIDE [Concomitant]
     Indication: BLOOD POTASSIUM DECREASED
  3. LASIX [Concomitant]
     Indication: BLOOD PRESSURE INCREASED
     Dosage: DAILY
  4. SIMVASTATIN [Concomitant]
     Indication: BLOOD CHOLESTEROL INCREASED
     Dosage: DAILY
  5. VITAMIN D 6000 [Concomitant]
     Indication: VITAMIN D DECREASED
  6. FISH OIL [Concomitant]
     Indication: PRODUCT USED FOR UNKNOWN INDICATION
  7. FORTEO [Concomitant]
     Indication: BONE DISORDER
  8. METHOTREXATE [Concomitant]
     Indication: PRODUCT USED FOR UNKNOWN INDICATION
  9. HUMIRA [Suspect]
     Indication: GASTROINTESTINAL HAEMORRHAGE
  10. PREDNISONE [Concomitant]
     Indication: CROHN'S DISEASE
     Dosage: DAILY
  11. FOLIC ACID [Concomitant]
     Indication: PRODUCT USED FOR UNKNOWN INDICATION
     Dosage: DAILY
  12. PROBIOTIC [Concomitant]
     Indication: PRODUCT USED FOR UNKNOWN INDICATION
  13. LISINOPRIL [Concomitant]
     Indication: HYPERTENSION
     Dosage: DAILY
  14. DICLOFENAC SODIUM [Concomitant]
     Indication: PRODUCT USED FOR UNKNOWN INDICATION
  15. VITAMIN B-12 [Concomitant]
     Indication: PRODUCT USED FOR UNKNOWN INDICATION
     Dosage: 100 MCG MONTHLY
  16. BIOEQUIVALENT PROGESTERONE [Concomitant]
     Indication: HYSTERECTOMY
     Dosage: DAILY
  17. FERROUS SULFATE TAB [Concomitant]
     Indication: BLOOD IRON DECREASED
     Dosage: DAILY
  18. METHOTREXATE [Concomitant]
     Dosage: 0.8 ML WEEKLY
     Dates: start: 20120101
  19. HYDROXYCHLOROQUINE SULFATE [Concomitant]
     Indication: SYSTEMIC LUPUS ERYTHEMATOSUS
  20. HUMIRA [Suspect]
     Indication: CROHN'S DISEASE
     Dates: start: 20100801

REACTIONS (6)
  - PNEUMOTHORAX [None]
  - RIB FRACTURE [None]
  - ROTATOR CUFF REPAIR [None]
  - GASTROINTESTINAL HAEMORRHAGE [None]
  - INJECTION SITE PAIN [None]
  - STOMATITIS [None]
